FAERS Safety Report 4693559-0 (Version None)
Quarter: 2005Q2

REPORT INFORMATION
  Report Type: 
  Country: None (occurrence: None)
  Receive Date: 20050615
  Receipt Date: 20050601
  Transmission Date: 20051028
  Serious: Yes (Hospitalization)
  Sender: FDA-Public Use
  Company Number: 2005BI008768

PATIENT
  Age: 64 Year
  Sex: Female

DRUGS (6)
  1. AVONEX [Suspect]
     Indication: MULTIPLE SCLEROSIS
     Dosage: 30 UG; QW; IM
     Route: 030
     Dates: start: 19960616
  2. TEGRETOL [Concomitant]
  3. FOSAMAX [Concomitant]
  4. PREMARIN [Concomitant]
  5. CELEBREX [Concomitant]
  6. 4 - AP [Concomitant]

REACTIONS (1)
  - INTERVERTEBRAL DISC OPERATION [None]
